FAERS Safety Report 19895774 (Version 2)
Quarter: 2022Q3

REPORT INFORMATION
  Report Type: Spontaneous
  Country: US (occurrence: US)
  Receive Date: 20210929
  Receipt Date: 20220705
  Transmission Date: 20221027
  Serious: No
  Sender: FDA-Public Use
  Company Number: US-SAREPTA THERAPEUTICS INC.-SRP2021-001653

PATIENT
  Age: 16 Year
  Sex: Male
  Weight: 59.3 kg

DRUGS (4)
  1. EXONDYS 51 [Suspect]
     Active Substance: ETEPLIRSEN
     Indication: Duchenne muscular dystrophy
     Dosage: 1800 MILLIGRAM
     Dates: start: 2017
  2. LISINOPRIL [Concomitant]
     Active Substance: LISINOPRIL
     Indication: Congestive cardiomyopathy
     Dosage: 20 MILLIGRAM, QD
     Route: 048
  3. CARVEDILOL [Concomitant]
     Active Substance: CARVEDILOL
     Indication: Congestive cardiomyopathy
     Dosage: 6.25 MILLIGRAM, BID
  4. PREDNISONE [Concomitant]
     Active Substance: PREDNISONE
     Indication: Duchenne muscular dystrophy
     Dosage: 25 MILLIGRAM, QD

REACTIONS (2)
  - Hyponatraemia [Not Recovered/Not Resolved]
  - Product dose omission issue [Unknown]

NARRATIVE: CASE EVENT DATE: 20210831
